FAERS Safety Report 6810162-4 (Version None)
Quarter: 2010Q2

REPORT INFORMATION
  Report Type: 
  Country: None (occurrence: None)
  Receive Date: 20100630
  Receipt Date: 20100628
  Transmission Date: 20101027
  Serious: Yes (Life-Threatening, Hospitalization)
  Sender: FDA-Public Use
  Company Number: US-CEPHALON-2010003075

PATIENT
  Sex: Male
  Weight: 118 kg

DRUGS (29)
  1. TREANDA [Suspect]
     Indication: SMALL CELL LUNG CANCER STAGE UNSPECIFIED
     Route: 042
     Dates: start: 20100426, end: 20100427
  2. TREANDA [Suspect]
     Route: 042
     Dates: start: 20100517, end: 20100518
  3. TREANDA [Suspect]
     Route: 042
     Dates: start: 20100517, end: 20100518
  4. LIPITOR [Concomitant]
     Indication: HYPERCHOLESTEROLAEMIA
     Dates: start: 20000101
  5. MAGIC SWIZZLE MOUTHWASH [Concomitant]
     Indication: MUCOSAL INFLAMMATION
     Dates: start: 20100502
  6. PRISTIQ [Concomitant]
     Indication: DEPRESSION
  7. ONDANSETRON [Concomitant]
     Indication: NAUSEA
     Dates: start: 20100201
  8. OXYCODONE HCL AND ACETAMINOPHEN [Concomitant]
     Indication: PAIN
     Dates: start: 20100201
  9. AQUAPHOR [Concomitant]
     Indication: PAIN
     Dates: start: 20100201
  10. HYDROCET [Concomitant]
     Indication: PAIN
     Dates: start: 20100201
  11. NEOMYCIN [Concomitant]
     Indication: PAIN
     Dates: start: 20100201
  12. LEVAQUIN [Concomitant]
     Indication: BRONCHITIS
     Dates: start: 20100524
  13. ALBUTEROL [Concomitant]
     Indication: BRONCHITIS
     Dates: start: 20100524
  14. AMBIEN CR [Concomitant]
     Indication: INSOMNIA
     Dates: start: 20100201
  15. DECADRON [Concomitant]
     Dates: start: 20100201
  16. LEXAPRO [Concomitant]
     Indication: DEPRESSION
     Dates: start: 20100301
  17. SINGULAIR [Concomitant]
     Indication: ASTHMA
     Dates: start: 20000101
  18. SINGULAIR [Concomitant]
     Dates: start: 20000101
  19. NEXIUM [Concomitant]
     Indication: GASTROOESOPHAGEAL REFLUX DISEASE
     Dates: start: 20000101
  20. NEXIUM [Concomitant]
     Dates: start: 20000101
  21. ADVAIR DISKUS 100/50 [Concomitant]
     Indication: ASTHMA
     Dates: start: 20040101
  22. ADVAIR DISKUS 100/50 [Concomitant]
     Dates: start: 20000101
  23. FENTANYL [Concomitant]
     Dates: start: 20100301
  24. LORAZEPAM [Concomitant]
     Indication: ANXIETY
     Dates: start: 20100201
  25. ASPIRIN [Concomitant]
     Indication: PROPHYLAXIS
     Dates: start: 20050101
  26. SENOKOT [Concomitant]
     Indication: CONSTIPATION
     Dates: start: 20100201
  27. MIRALAX [Concomitant]
     Indication: CONSTIPATION
     Dates: start: 20100201
  28. OXYCODONE HCL [Concomitant]
     Indication: PAIN
     Dates: start: 20100201
  29. PHENERGAN [Concomitant]
     Indication: NAUSEA
     Dates: start: 20100201

REACTIONS (1)
  - PULMONARY EMBOLISM [None]
